FAERS Safety Report 7860089-4 (Version None)
Quarter: 2011Q4

REPORT INFORMATION
  Report Type: 
  Country: None (occurrence: None)
  Receive Date: 20111026
  Receipt Date: 20111015
  Transmission Date: 20120403
  Serious: Yes (Hospitalization, Other)
  Sender: FDA-Public Use
  Company Number: 2011AP002413

PATIENT
  Age: 18 Year
  Sex: Male

DRUGS (1)
  1. TRAMADOL HYDROCHLORIDE [Suspect]
     Indication: PRODUCT USED FOR UNKNOWN INDICATION

REACTIONS (10)
  - RENAL FAILURE ACUTE [None]
  - DYSURIA [None]
  - CONVULSION [None]
  - DRUG ABUSE [None]
  - DRUG SCREEN POSITIVE [None]
  - ABDOMINAL TENDERNESS [None]
  - RHABDOMYOLYSIS [None]
  - MULTIPLE DRUG OVERDOSE [None]
  - RESPIRATORY RATE INCREASED [None]
  - HAEMODIALYSIS [None]
